FAERS Safety Report 4710799-2 (Version None)
Quarter: 2005Q3

REPORT INFORMATION
  Report Type: 
  Country: None (occurrence: None)
  Receive Date: 20050706
  Receipt Date: 20050706
  Transmission Date: 20060218
  Serious: Yes (Death)
  Sender: FDA-Public Use
  Company Number: None

PATIENT
  Sex: Female
  Weight: 65.91 kg

DRUGS (3)
  1. DAUNORUBICIN HCL [Suspect]
     Dates: start: 20050506
  2. CYTARABINE [Suspect]
  3. CYCLOSPORINE [Suspect]

REACTIONS (4)
  - ACUTE RESPIRATORY DISTRESS SYNDROME [None]
  - BIOPSY BONE MARROW ABNORMAL [None]
  - BRADYCARDIA [None]
  - TRACHEOSTOMY [None]
